FAERS Safety Report 7033795-1 (Version None)
Quarter: 2010Q4

REPORT INFORMATION
  Report Type: 
  Country: None (occurrence: None)
  Receive Date: 20101007
  Receipt Date: 20100927
  Transmission Date: 20110411
  Serious: Yes (Other)
  Sender: FDA-Public Use
  Company Number: US-CELGENEUS-163-21880-10092740

PATIENT
  Sex: Female

DRUGS (2)
  1. REVLIMID [Suspect]
     Indication: MULTIPLE MYELOMA
     Route: 048
     Dates: start: 20100701, end: 20100101
  2. REVLIMID [Suspect]
     Route: 048
     Dates: start: 20100901

REACTIONS (1)
  - CARDIAC PACEMAKER INSERTION [None]
